FAERS Safety Report 9853887 (Version 1)
Quarter: 2014Q1

REPORT INFORMATION
  Report Type: Spontaneous
  Country: KR (occurrence: KR)
  Receive Date: 20140129
  Receipt Date: 20140129
  Transmission Date: 20141002
  Serious: Yes (Other)
  Sender: FDA-Public Use
  Company Number: KR-PFIZER INC-2014025274

PATIENT
  Sex: Female

DRUGS (1)
  1. CELEBREX [Suspect]
     Indication: CHONDROPATHY
     Dosage: UNK
     Route: 048

REACTIONS (2)
  - Thyroid cancer [Unknown]
  - Hypertension [Unknown]
